FAERS Safety Report 11418097 (Version 1)
Quarter: 2015Q3

REPORT INFORMATION
  Report Type: Spontaneous
  Country: US (occurrence: US)
  Receive Date: 20150825
  Receipt Date: 20150825
  Transmission Date: 20151125
  Serious: No
  Sender: FDA-Public Use
  Company Number: US-PURDUE-USA-2015-0124796

PATIENT
  Sex: Female

DRUGS (3)
  1. ASPIRIN. [Suspect]
     Active Substance: ASPIRIN
     Indication: ARTHRITIS
     Route: 048
  2. VICODIN HP [Suspect]
     Active Substance: ACETAMINOPHEN\HYDROCODONE BITARTRATE
     Indication: BREAKTHROUGH PAIN
     Dosage: 10 MG, BID
     Route: 048
  3. HYSINGLA ER [Suspect]
     Active Substance: HYDROCODONE BITARTRATE
     Indication: PAIN
     Dosage: 400 MG, Q24H
     Route: 048

REACTIONS (11)
  - Dyspnoea [Unknown]
  - Drug effect delayed [Unknown]
  - Amnesia [Unknown]
  - Unevaluable event [Unknown]
  - Asthenia [Unknown]
  - Vitamin K decreased [Unknown]
  - Contusion [Unknown]
  - Disturbance in attention [Unknown]
  - Nervousness [Unknown]
  - Tremor [Unknown]
  - Headache [Unknown]
